FAERS Safety Report 9166228 (Version 1)
Quarter: 2013Q1

REPORT INFORMATION
  Report Type: Spontaneous
  Country: FR (occurrence: None)
  Receive Date: 20130301
  Receipt Date: 20130301
  Transmission Date: 20140127
  Serious: Yes (Hospitalization)
  Sender: FDA-Public Use
  Company Number: 1612642

PATIENT
  Age: 58 Year
  Sex: Female

DRUGS (3)
  1. PAMIDRONIC ACID [Suspect]
     Indication: PROPHYLAXIS
     Dosage: DURATION OF DOSAGE: ONE WEEK.
     Route: 041
     Dates: start: 20121022, end: 20121022
  2. PAMIDRONIC ACID [Suspect]
     Indication: PROPHYLAXIS
     Dosage: DURATION OF DOSAGE: ONE WEEK.
     Route: 041
     Dates: start: 20121022, end: 20121022
  3. DEXTROSE [Concomitant]

REACTIONS (4)
  - Hyperhidrosis [None]
  - Loss of consciousness [None]
  - Eye movement disorder [None]
  - Rash [None]
